FAERS Safety Report 6555209-8 (Version None)
Quarter: 2010Q1

REPORT INFORMATION
  Report Type: 
  Country: None (occurrence: None)
  Receive Date: 20100126
  Receipt Date: 20100112
  Transmission Date: 20100710
  Serious: Yes (Other)
  Sender: FDA-Public Use
  Company Number: 2010AP000075

PATIENT
  Sex: Male

DRUGS (4)
  1. RANITIDINE HYDROCHLORIDE [Suspect]
  2. PREZISTA [Suspect]
     Indication: HIV INFECTION
     Dosage: 800 MG;TAB;PO;QD
     Route: 048
     Dates: start: 20080201
  3. OMEPRAZOLE [Concomitant]
  4. RITONAVIR [Concomitant]

REACTIONS (2)
  - CONTUSION [None]
  - THROMBOCYTOPENIA [None]
